FAERS Safety Report 7472368-3 (Version None)
Quarter: 2011Q2

REPORT INFORMATION
  Report Type: 
  Country: None (occurrence: None)
  Receive Date: 20110511
  Receipt Date: 20110427
  Transmission Date: 20111010
  Serious: Yes (Hospitalization)
  Sender: FDA-Public Use
  Company Number: PHHO2009AU08807

PATIENT
  Sex: Male
  Weight: 83.4 kg

DRUGS (16)
  1. CLOPIDOGREL [Suspect]
     Indication: CORONARY ARTERY DISEASE
     Dosage: 75MG DAILY
     Route: 048
     Dates: end: 20100702
  2. MOTILIUM [Concomitant]
  3. IVABRADINE [Concomitant]
     Indication: ANGINA PECTORIS
  4. CALCIUM [Concomitant]
  5. NICORANDIL [Concomitant]
     Indication: ANGINA PECTORIS
  6. PLAVIX [Concomitant]
  7. METOPROLOL SUCCINATE [Suspect]
     Dosage: UNK
     Dates: start: 20090716
  8. PERINDOPRIL [Concomitant]
     Indication: HYPERTENSION
  9. ARGININE [Concomitant]
     Indication: ANGINA PECTORIS
  10. IMATINIB MESYLATE [Suspect]
     Indication: CHRONIC MYELOID LEUKAEMIA
     Dosage: 600MG
     Route: 048
     Dates: start: 20090622
  11. INDAPAMIDE W/PERINDOPRIL [Concomitant]
     Indication: HYPERTENSION
  12. ZANIDIP [Concomitant]
  13. ASPIRIN [Suspect]
     Indication: CORONARY ARTERY DISEASE
     Dosage: 150MG DAILY
     Route: 048
     Dates: end: 20100702
  14. FELODIPINE [Suspect]
     Indication: HYPERTENSION
  15. VITAMIN D [Concomitant]
  16. ALLOPURINOL [Concomitant]

REACTIONS (30)
  - ANAEMIA [None]
  - RENAL IMPAIRMENT [None]
  - CONCOMITANT DISEASE PROGRESSION [None]
  - PALPITATIONS [None]
  - PLEURAL EFFUSION [None]
  - CREPITATIONS [None]
  - MALAISE [None]
  - ABDOMINAL TENDERNESS [None]
  - FALL [None]
  - HYPERHIDROSIS [None]
  - ANGINA PECTORIS [None]
  - CORONARY ARTERY DISEASE [None]
  - CHEST PAIN [None]
  - CHEST DISCOMFORT [None]
  - GASTRIC ULCER [None]
  - DIZZINESS [None]
  - ABDOMINAL DISCOMFORT [None]
  - DYSPNOEA [None]
  - CORONARY ARTERY OCCLUSION [None]
  - HAEMATOCHEZIA [None]
  - ACUTE PULMONARY OEDEMA [None]
  - HEADACHE [None]
  - BREATH SOUNDS ABNORMAL [None]
  - TROPONIN INCREASED [None]
  - ACUTE MYOCARDIAL INFARCTION [None]
  - GASTRITIS [None]
  - CORONARY ARTERY STENOSIS [None]
  - MYOCARDIAL ISCHAEMIA [None]
  - LUNG CONSOLIDATION [None]
  - COUGH [None]
